FAERS Safety Report 21343230 (Version 2)
Quarter: 2022Q4

REPORT INFORMATION
  Report Type: Spontaneous
  Country: US (occurrence: US)
  Receive Date: 20220916
  Receipt Date: 20221028
  Transmission Date: 20230113
  Serious: Yes (Hospitalization)
  Sender: FDA-Public Use
  Company Number: US-ALXN-A202210931

PATIENT

DRUGS (1)
  1. STRENSIQ [Suspect]
     Active Substance: ASFOTASE ALFA
     Indication: Hypophosphatasia
     Dosage: UNK
     Route: 065

REACTIONS (5)
  - Respiratory disorder [Unknown]
  - Drug ineffective [Unknown]
  - Blood alkaline phosphatase decreased [Unknown]
  - Asthenia [Recovering/Resolving]
  - Injection site atrophy [Unknown]
